FAERS Safety Report 6930823-6 (Version None)
Quarter: 2010Q3

REPORT INFORMATION
  Report Type: 
  Country: None (occurrence: None)
  Receive Date: 20100818
  Receipt Date: 20100810
  Transmission Date: 20110219
  Serious: Yes (Hospitalization, Other)
  Sender: FDA-Public Use
  Company Number: FR-ABBOTT-10P-056-0663596-00

PATIENT
  Sex: Male

DRUGS (2)
  1. TARKA [Suspect]
     Indication: HYPERTENSION
     Dates: end: 20100331
  2. COOLMETEC [Suspect]
     Indication: HYPERTENSION
     Dates: end: 20100331

REACTIONS (4)
  - DEHYDRATION [None]
  - MULTI-ORGAN FAILURE [None]
  - RENAL FAILURE ACUTE [None]
  - VOMITING [None]
